FAERS Safety Report 16964457 (Version 3)
Quarter: 2019Q4

REPORT INFORMATION
  Report Type: Report from Study
  Country: US (occurrence: US)
  Receive Date: 20191027
  Receipt Date: 20191126
  Transmission Date: 20200122
  Serious: Yes (Life-Threatening, Hospitalization)
  Sender: FDA-Public Use
  Company Number: US-BIOGEN-2019BI00799664

PATIENT
  Age: 59 Year
  Sex: Female

DRUGS (3)
  1. TYSABRI [Suspect]
     Active Substance: NATALIZUMAB
     Route: 065
     Dates: end: 2019
  2. TYSABRI [Suspect]
     Active Substance: NATALIZUMAB
     Indication: MULTIPLE SCLEROSIS
     Dosage: INFUSED OVER 1 HOUR
     Route: 042
  3. TYSABRI [Suspect]
     Active Substance: NATALIZUMAB
     Route: 065
     Dates: start: 20181109, end: 20190211

REACTIONS (1)
  - Endometrial cancer [Unknown]

NARRATIVE: CASE EVENT DATE: 201909
